FAERS Safety Report 7907485-4 (Version None)
Quarter: 2011Q4

REPORT INFORMATION
  Report Type: 
  Country: None (occurrence: None)
  Receive Date: 20111110
  Receipt Date: 20111103
  Transmission Date: 20120403
  Serious: Yes (Other)
  Sender: FDA-Public Use
  Company Number: HR-ABBOTT-11P-216-0854002-00

PATIENT
  Sex: Female

DRUGS (6)
  1. CALCIUM [Concomitant]
     Indication: PRODUCT USED FOR UNKNOWN INDICATION
     Dates: start: 20100112
  2. MEDICINAL GYMNASTIC [Concomitant]
     Indication: PRODUCT USED FOR UNKNOWN INDICATION
  3. VITAMIN D [Concomitant]
     Indication: PRODUCT USED FOR UNKNOWN INDICATION
     Dates: start: 20100112
  4. LUMIDOL [Concomitant]
     Indication: PRODUCT USED FOR UNKNOWN INDICATION
     Dosage: 50-100MG, 1-2 CAPSULES DAILY
     Route: 048
     Dates: start: 20100112
  5. HUMIRA [Suspect]
     Indication: RHEUMATOID ARTHRITIS
     Dosage: HAD THERAPY INTERRUPTIONS
     Route: 058
     Dates: start: 20100209, end: 20110906
  6. MEDROL [Concomitant]
     Indication: RHEUMATOID ARTHRITIS
     Dosage: 8MG: 16MG: 1/2 TBL DAILY
     Route: 048
     Dates: start: 20100209

REACTIONS (3)
  - GAMMA-GLUTAMYLTRANSFERASE INCREASED [None]
  - ARTHRALGIA [None]
  - JOINT SWELLING [None]
